FAERS Safety Report 23358227 (Version 4)
Quarter: 2025Q2

REPORT INFORMATION
  Report Type: Report from Study
  Country: US (occurrence: US)
  Receive Date: 20240102
  Receipt Date: 20250402
  Transmission Date: 20250717
  Serious: Yes (Other)
  Sender: ABBVIE
  Company Number: US-ABBVIE-5566088

PATIENT
  Age: 57 Year
  Sex: Female

DRUGS (3)
  1. SKYRIZI [Suspect]
     Active Substance: RISANKIZUMAB-RZAA
     Indication: Psoriasis
     Route: 058
  2. SKYRIZI [Suspect]
     Active Substance: RISANKIZUMAB-RZAA
     Route: 058
  3. SKYRIZI [Suspect]
     Active Substance: RISANKIZUMAB-RZAA
     Route: 058
     Dates: start: 20220408

REACTIONS (13)
  - Goitre [Recovered/Resolved]
  - Psoriasis [Recovered/Resolved]
  - Psoriatic arthropathy [Unknown]
  - Systemic lupus erythematosus [Recovered/Resolved]
  - Arthritis [Unknown]
  - Amblyopia [Recovering/Resolving]
  - Blood potassium decreased [Recovering/Resolving]
  - Astigmatism [Unknown]
  - Myopia [Unknown]
  - Apathy [Recovering/Resolving]
  - Stress [Unknown]
  - Alopecia [Unknown]
  - Pain in extremity [Unknown]

NARRATIVE: CASE EVENT DATE: 20220101
